FAERS Safety Report 13769700 (Version 1)
Quarter: 2017Q3

REPORT INFORMATION
  Report Type: Spontaneous
  Country: FR (occurrence: FR)
  Receive Date: 20170719
  Receipt Date: 20170719
  Transmission Date: 20171127
  Serious: Yes (Other)
  Sender: FDA-Public Use
  Company Number: FR-PFIZER INC-2924425

PATIENT
  Age: 55 Year
  Sex: Female

DRUGS (5)
  1. ONDANSETRON [Concomitant]
     Active Substance: ONDANSETRON
     Indication: PRODUCT USED FOR UNKNOWN INDICATION
  2. BISOPROLOL HEMIFUMARATE [Concomitant]
     Active Substance: BISOPROLOL FUMARATE
     Indication: PRODUCT USED FOR UNKNOWN INDICATION
  3. SOLUPRED /00049601/ [Concomitant]
     Indication: PRODUCT USED FOR UNKNOWN INDICATION
  4. DOCETAXEL HOSPIRA [Suspect]
     Active Substance: DOCETAXEL
     Indication: BREAST CANCER
     Dosage: 167 MG, UNK
     Route: 042
     Dates: start: 20150324, end: 20150324
  5. TAHOR [Concomitant]
     Active Substance: ATORVASTATIN CALCIUM
     Indication: PRODUCT USED FOR UNKNOWN INDICATION

REACTIONS (6)
  - Oedema peripheral [Recovered/Resolved]
  - Mucosal inflammation [Recovered/Resolved]
  - Myalgia [Recovered/Resolved]
  - Palmar-plantar erythrodysaesthesia syndrome [Recovering/Resolving]
  - Rash generalised [Recovered/Resolved]
  - Gait disturbance [Unknown]

NARRATIVE: CASE EVENT DATE: 201504
